FAERS Safety Report 4620249-2 (Version None)
Quarter: 2005Q1

REPORT INFORMATION
  Report Type: 
  Country: None (occurrence: None)
  Receive Date: 20050321
  Receipt Date: 20050321
  Transmission Date: 20050727
  Serious: Yes (Hospitalization)
  Sender: FDA-Public Use
  Company Number: None

PATIENT
  Sex: Male
  Weight: 104.6902 kg

DRUGS (4)
  1. DOCETAXEL [Suspect]
     Indication: LUNG NEOPLASM MALIGNANT
     Dosage: 82 MG IV
     Route: 042
     Dates: start: 20050110
  2. DOCETAXEL [Suspect]
     Indication: LUNG NEOPLASM MALIGNANT
     Dosage: 82 MG IV
     Route: 042
     Dates: start: 20050118
  3. DOCETAXEL [Suspect]
     Indication: LUNG NEOPLASM MALIGNANT
     Dosage: 82 MG IV
     Route: 042
     Dates: start: 20050124
  4. CAPECITABINE [Suspect]
     Indication: LUNG NEOPLASM MALIGNANT
     Dosage: 1300 MG PO BID
     Route: 048
     Dates: start: 20050117, end: 20050124

REACTIONS (3)
  - DEHYDRATION [None]
  - MUCOSAL INFLAMMATION [None]
  - PAIN [None]
